FAERS Safety Report 4387792-5 (Version None)
Quarter: 2004Q2

REPORT INFORMATION
  Report Type: 
  Country: None (occurrence: None)
  Receive Date: 20040630
  Receipt Date: 20020729
  Transmission Date: 20050107
  Serious: Yes (Hospitalization)
  Sender: FDA-Public Use
  Company Number: FR-GLAXOSMITHKLINE-B0275535A

PATIENT
  Age: 95 Year
  Sex: Male

DRUGS (2)
  1. CLAMOXYL [Suspect]
     Indication: ACUTE ENDOCARDITIS
     Dosage: 10G PER DAY
     Route: 042
     Dates: start: 20020321, end: 20020403
  2. GENTAMICIN [Suspect]
     Indication: ACUTE ENDOCARDITIS
     Dosage: 160MG PER DAY
     Route: 042
     Dates: start: 20020321, end: 20020329

REACTIONS (4)
  - ANAEMIA [None]
  - HYPOTENSION [None]
  - PANCYTOPENIA [None]
  - THROMBOCYTOPENIA [None]
